FAERS Safety Report 4781170-2 (Version None)
Quarter: 2005Q3

REPORT INFORMATION
  Report Type: 
  Country: None (occurrence: None)
  Receive Date: 20050914
  Receipt Date: 20050104
  Transmission Date: 20060218
  Serious: Yes (Death, Hospitalization)
  Sender: FDA-Public Use
  Company Number: 163-20785-05010037

PATIENT
  Age: 86 Year
  Sex: Female
  Weight: 43.9989 kg

DRUGS (3)
  1. THALOMID [Suspect]
     Indication: MYELODYSPLASTIC SYNDROME
     Dosage: QD, ORAL
     Route: 048
  2. TAMOXIFEN CITRATE [Suspect]
     Indication: BREAST CANCER FEMALE
  3. PROCRIT [Suspect]
     Indication: ANAEMIA
     Dosage: 20,000 IU, X 3 WEEKLY, SUBCUTANEOUS
     Route: 058
     Dates: start: 20040326, end: 20040701

REACTIONS (3)
  - ANAEMIA [None]
  - DEATH [None]
  - DISEASE PROGRESSION [None]
